FAERS Safety Report 6964076 (Version 3)
Quarter: 2018Q4

REPORT INFORMATION
  Report Type: Spontaneous
  Country: JP (occurrence: JP)
  Receive Date: 20090408
  Receipt Date: 20181016
  Transmission Date: 20190205
  Serious: Yes (Hospitalization, Other)
  Sender: FDA-Public Use
  Company Number: PHHY2009JP12397

PATIENT
  Age: 68 Year
  Sex: Female
  Weight: 43 kg

DRUGS (9)
  1. COMTAN [Suspect]
     Active Substance: ENTACAPONE
     Dosage: 100 MG, TID
     Route: 048
     Dates: start: 20090331, end: 20090403
  2. NEODOPASOL [Concomitant]
     Active Substance: BENSERAZIDE HYDROCHLORIDE\LEVODOPA
     Indication: PARKINSON^S DISEASE
     Dosage: 750 MG, UNK
     Route: 048
     Dates: start: 2006
  3. ARTANE [Concomitant]
     Active Substance: TRIHEXYPHENIDYL HYDROCHLORIDE
     Indication: PARKINSON^S DISEASE
     Dosage: 3 MG, UNK
     Route: 048
     Dates: start: 2006
  4. DEPAS [Concomitant]
     Active Substance: ETIZOLAM
     Indication: INSOMNIA
     Dosage: 0.5 MG
     Route: 048
     Dates: start: 20090327
  5. CABASER [Concomitant]
     Active Substance: CABERGOLINE
     Indication: PARKINSON^S DISEASE
     Dosage: 2 MG, UNK
     Route: 048
     Dates: start: 2006
  6. ROHYPNOL [Concomitant]
     Active Substance: FLUNITRAZEPAM
     Indication: INSOMNIA
     Dosage: 2 MG
     Route: 048
     Dates: start: 20090221, end: 20090311
  7. COMTAN [Suspect]
     Active Substance: ENTACAPONE
     Indication: PARKINSON^S DISEASE
     Dosage: 100 MG, 6QD
     Route: 048
     Dates: start: 20090313, end: 20090330
  8. LENDORMIN [Concomitant]
     Active Substance: BROTIZOLAM
     Indication: INSOMNIA
     Dosage: 0.25 MG
     Route: 048
     Dates: start: 20090312
  9. CONTOMIN [Concomitant]
     Active Substance: CHLORPROMAZINE
     Indication: INSOMNIA
     Dosage: 25 MG
     Route: 048
     Dates: start: 20090221, end: 20090326

REACTIONS (16)
  - Insomnia [Recovering/Resolving]
  - Blood chloride decreased [Unknown]
  - Haemoglobin decreased [Unknown]
  - Restlessness [Recovering/Resolving]
  - Bacterial infection [Unknown]
  - Hallucinations, mixed [Recovering/Resolving]
  - Loss of personal independence in daily activities [Not Recovered/Not Resolved]
  - C-reactive protein increased [Unknown]
  - Anxiety [Recovering/Resolving]
  - Blood sodium decreased [Unknown]
  - Delusion [Recovering/Resolving]
  - Speech disorder [Unknown]
  - Haematocrit decreased [Unknown]
  - Blood albumin decreased [Unknown]
  - Confusional state [Recovering/Resolving]
  - Red blood cell count decreased [Unknown]

NARRATIVE: CASE EVENT DATE: 20090320
